FAERS Safety Report 19226314 (Version 1)
Quarter: 2021Q2

REPORT INFORMATION
  Report Type: Spontaneous
  Country: US (occurrence: US)
  Receive Date: 20210505
  Receipt Date: 20210505
  Transmission Date: 20210717
  Serious: No
  Sender: FDA-Public Use
  Company Number: US-ROCHE-2770370

PATIENT
  Sex: Male
  Weight: 79.45 kg

DRUGS (4)
  1. AVASTIN [Suspect]
     Active Substance: BEVACIZUMAB
     Indication: METASTASES TO LIVER
     Dosage: DOSE: 25 MG/ML
     Route: 042
     Dates: start: 20201020, end: 20210112
  2. ASPIRIN 81 [Concomitant]
     Active Substance: ASPIRIN
     Route: 048
     Dates: start: 20201020
  3. AMLODIPINE [Concomitant]
     Active Substance: AMLODIPINE BESYLATE
     Route: 048
     Dates: start: 20201020
  4. ATORVASTATIN [Concomitant]
     Active Substance: ATORVASTATIN
     Route: 048
     Dates: start: 20201020

REACTIONS (1)
  - Haemorrhage [Unknown]
